FAERS Safety Report 4627992-X (Version None)
Quarter: 2005Q2

REPORT INFORMATION
  Report Type: 
  Country: None (occurrence: None)
  Receive Date: 20050405
  Receipt Date: 20050405
  Transmission Date: 20051028
  Serious: Yes (Life-Threatening)
  Sender: FDA-Public Use
  Company Number: None

PATIENT
  Age: 72 Year
  Sex: Female
  Weight: 51.7101 kg

DRUGS (6)
  1. VELCADE [Suspect]
     Indication: MULTIPLE MYELOMA
     Dosage: 1.3 MG/M2 (2 MG) TWICE WEEKLY X 2 WKS WITH 10 DAYS OFF
     Dates: start: 20030624
  2. VELCADE [Suspect]
     Indication: MULTIPLE MYELOMA
     Dosage: 1.3 MG/M2 (2 MG) TWICE WEEKLY X 2 WKS WITH 10 DAYS OFF
     Dates: start: 20030627
  3. VELCADE [Suspect]
     Indication: MULTIPLE MYELOMA
     Dosage: 1.3 MG/M2 (2 MG) TWICE WEEKLY X 2 WKS WITH 10 DAYS OFF
     Dates: start: 20030630
  4. VELCADE [Suspect]
     Indication: MULTIPLE MYELOMA
     Dosage: 1.3 MG/M2 (2 MG) TWICE WEEKLY X 2 WKS WITH 10 DAYS OFF
     Dates: start: 20030703
  5. VELCADE [Suspect]
     Indication: MULTIPLE MYELOMA
     Dosage: 1.3 MG/M2 (2 MG) TWICE WEEKLY X 2 WKS WITH 10 DAYS OFF
     Dates: start: 20030715
  6. VELCADE [Suspect]
     Indication: MULTIPLE MYELOMA
     Dosage: 1.3 MG/M2 (2 MG) TWICE WEEKLY X 2 WKS WITH 10 DAYS OFF
     Dates: start: 20030718

REACTIONS (5)
  - HEPATIC CIRRHOSIS [None]
  - NEUROPATHY PERIPHERAL [None]
  - PAIN IN EXTREMITY [None]
  - PARAESTHESIA [None]
  - VARICES OESOPHAGEAL [None]
